FAERS Safety Report 13702114 (Version 1)
Quarter: 2017Q2

REPORT INFORMATION
  Report Type: Spontaneous
  Country: US (occurrence: US)
  Receive Date: 20170629
  Receipt Date: 20170629
  Transmission Date: 20170830
  Serious: No
  Sender: FDA-Public Use
  Company Number: US-JNJFOC-20170204848

PATIENT
  Age: 61 Year
  Sex: Female
  Weight: 65.32 kg

DRUGS (4)
  1. URSO [Concomitant]
     Active Substance: URSODIOL
     Indication: AUTOIMMUNE DISORDER
     Route: 065
     Dates: start: 20060108, end: 20170105
  2. CALCIUM [Concomitant]
     Active Substance: CALCIUM
     Indication: NUTRITIONAL SUPPLEMENTATION
     Route: 065
     Dates: start: 20080110, end: 20170105
  3. FLORAJEN3 [Concomitant]
     Indication: PROBIOTIC THERAPY
     Route: 065
     Dates: start: 20080110, end: 20170105
  4. NIZORAL [Suspect]
     Active Substance: KETOCONAZOLE
     Indication: PRURITUS
     Route: 061
     Dates: start: 20160603, end: 20160603

REACTIONS (2)
  - Hypersensitivity [Recovered/Resolved]
  - Eye swelling [Recovered/Resolved]

NARRATIVE: CASE EVENT DATE: 20160603
